FAERS Safety Report 9412780 (Version 3)
Quarter: 2015Q2

REPORT INFORMATION
  Report Type: Report from Study
  Country: BR (occurrence: BR)
  Receive Date: 20130722
  Receipt Date: 20150413
  Transmission Date: 20150821
  Serious: Yes (Hospitalization, Other)
  Sender: FDA-Public Use
  Company Number: PHHY2013BR077710

PATIENT
  Sex: Female
  Weight: 87 kg

DRUGS (4)
  1. DIOVAN AMLO FIX [Suspect]
     Active Substance: AMLODIPINE\VALSARTAN
     Indication: HYPERTENSION
     Dosage: 1 DF (320/5 MG 1 TABLET IN THE MORNING)
     Route: 065
     Dates: end: 201503
  2. NATRILIX [Suspect]
     Active Substance: INDAPAMIDE
     Indication: HYPERTENSION
     Dosage: 1.5 MG, QD
     Route: 065
  3. DIGEDRAT [Concomitant]
     Indication: DIVERTICULITIS
     Dosage: 1 DF, QD
     Route: 048
  4. ALPRAZOLAM. [Concomitant]
     Active Substance: ALPRAZOLAM
     Indication: SEDATIVE THERAPY
     Dosage: 1 DF, QD
     Route: 048

REACTIONS (7)
  - Neck pain [Recovered/Resolved]
  - Peripheral swelling [Recovering/Resolving]
  - Gastrointestinal infection [Recovered/Resolved]
  - Dengue fever [Recovered/Resolved]
  - Hypertension [Recovered/Resolved]
  - Headache [Recovered/Resolved]
  - Diabetes mellitus [Recovering/Resolving]
